FAERS Safety Report 8923393 (Version 1)
Quarter: 2012Q4

REPORT INFORMATION
  Report Type: Report from Study
  Country: CA (occurrence: CA)
  Receive Date: 20121123
  Receipt Date: 20121123
  Transmission Date: 20130627
  Serious: Yes (Other)
  Sender: FDA-Public Use
  Company Number: CA-JNJFOC-20121103491

PATIENT
  Age: 22 None
  Sex: Male

DRUGS (5)
  1. REMICADE [Suspect]
     Indication: COLITIS ULCERATIVE
     Route: 042
     Dates: start: 20111102
  2. REMICADE [Suspect]
     Indication: COLITIS ULCERATIVE
     Route: 042
     Dates: start: 20120914
  3. PREDNISONE [Concomitant]
     Dosage: since 2 weeks
     Route: 048
  4. IMURAN [Concomitant]
     Route: 048
  5. NEXIUM [Concomitant]
     Route: 048

REACTIONS (7)
  - Rash erythematous [Unknown]
  - Butterfly rash [Unknown]
  - Colitis ulcerative [Unknown]
  - Weight decreased [Unknown]
  - Joint swelling [Unknown]
  - Oedema peripheral [Unknown]
  - Joint swelling [Unknown]
